FAERS Safety Report 25804924 (Version 1)
Quarter: 2025Q3

REPORT INFORMATION
  Report Type: Spontaneous
  Country: EU (occurrence: EU)
  Receive Date: 20250916
  Receipt Date: 20250916
  Transmission Date: 20251020
  Serious: Yes (Hospitalization)
  Sender: JOHNSON AND JOHNSON
  Company Number: EU-JNJFOC-20250914060

PATIENT
  Sex: Female

DRUGS (1)
  1. STELARA [Suspect]
     Active Substance: USTEKINUMAB
     Indication: Crohn^s disease
     Dosage: NUMBER OF UNITS THIS INVOLVED IN THE COMPLAINT: 2
     Route: 058

REACTIONS (2)
  - Bradycardia [Recovering/Resolving]
  - Supraventricular extrasystoles [Unknown]

NARRATIVE: CASE EVENT DATE: 20250909
